FAERS Safety Report 19662358 (Version 1)
Quarter: 2021Q3

REPORT INFORMATION
  Report Type: Spontaneous
  Country: US (occurrence: US)
  Receive Date: 20210805
  Receipt Date: 20210805
  Transmission Date: 20211014
  Serious: No
  Sender: FDA-Public Use
  Company Number: US-MYLANLABS-2021M1041824

PATIENT
  Sex: Male
  Weight: 104 kg

DRUGS (3)
  1. FENTANYL TRANSDERMAL SYSTEM [Suspect]
     Active Substance: FENTANYL
     Indication: PAIN
     Dosage: 50 MICROGRAM, Q3D, WEAR ONE PATCH. CHANE PATCH EVERY THREE DAYS.
     Route: 062
  2. FENTANYL TRANSDERMAL SYSTEM [Suspect]
     Active Substance: FENTANYL
     Indication: PAIN
     Dosage: UNK
     Route: 062
  3. PERCOCET                           /00446701/ [Concomitant]
     Active Substance: ACETAMINOPHEN\OXYCODONE HYDROCHLORIDE\OXYCODONE TEREPHTHALATE
     Dosage: 10/325 ORAL, EVERY SIX HOURS
     Route: 048

REACTIONS (5)
  - Product adhesion issue [Not Recovered/Not Resolved]
  - Withdrawal syndrome [Unknown]
  - Feeling abnormal [Recovered/Resolved]
  - Product quality issue [Not Recovered/Not Resolved]
  - Off label use [Not Recovered/Not Resolved]
